FAERS Safety Report 18476370 (Version 2)
Quarter: 2021Q1

REPORT INFORMATION
  Report Type: Spontaneous
  Country: US (occurrence: US)
  Receive Date: 20201106
  Receipt Date: 20210308
  Transmission Date: 20210419
  Serious: No
  Sender: FDA-Public Use
  Company Number: US-PFIZER INC-2020430279

PATIENT
  Age: 66 Year
  Sex: Female

DRUGS (1)
  1. IBRANCE [Suspect]
     Active Substance: PALBOCICLIB
     Indication: BREAST CANCER FEMALE
     Dosage: 125 MG, CYCLIC, 1 TABLET ORAL DAILY FOR 21 DAYS, THEN OFF 10 DAYS

REACTIONS (3)
  - Nausea [Unknown]
  - Product use issue [Unknown]
  - Off label use [Unknown]
